FAERS Safety Report 18272042 (Version 1)
Quarter: 2020Q3

REPORT INFORMATION
  Report Type: Spontaneous
  Country: FR (occurrence: FR)
  Receive Date: 20200916
  Receipt Date: 20200916
  Transmission Date: 20201103
  Serious: Yes (Hospitalization)
  Sender: FDA-Public Use
  Company Number: FR-CADILA HEALTHCARE LIMITED-FR-ZYDUS-023099

PATIENT

DRUGS (7)
  1. KALEORID LP [Suspect]
     Active Substance: POTASSIUM CHLORIDE
     Indication: HYPOKALAEMIA
     Dosage: 1 GRAM,(INTERVAL :1 DAYS)
     Route: 048
  2. ANCOTIL [Suspect]
     Active Substance: FLUCYTOSINE
     Indication: FUNGAL INFECTION
     Dosage: 8 GRAM,(INTERVAL :1 DAYS)
     Route: 048
     Dates: start: 201710
  3. NOXAFIL [Suspect]
     Active Substance: POSACONAZOLE
     Indication: FUNGAL INFECTION
     Dosage: 300 MILLIGRAM,(INTERVAL :1 DAYS)
     Route: 048
     Dates: start: 201710
  4. REPAGLINIDE. [Suspect]
     Active Substance: REPAGLINIDE
     Indication: DIABETES MELLITUS
     Dosage: 1 MILLIGRAM,(INTERVAL :1 DAYS)
     Route: 048
  5. LANSOPRAZOLE. [Suspect]
     Active Substance: LANSOPRAZOLE
     Indication: PRODUCT USED FOR UNKNOWN INDICATION
     Dosage: 1.5 MILLIGRAM,(INTERVAL :1 DAYS)
     Route: 048
  6. KEPPRA [Suspect]
     Active Substance: LEVETIRACETAM
     Indication: CEREBRAL DISORDER
     Dosage: 1000 MILLIGRAM,(INTERVAL :1 DAYS)
     Route: 048
     Dates: start: 201710
  7. AVODART [Suspect]
     Active Substance: DUTASTERIDE
     Indication: PRODUCT USED FOR UNKNOWN INDICATION
     Dosage: .5 MILLIGRAM,(INTERVAL :1 DAYS)
     Route: 048

REACTIONS (3)
  - Left ventricular dysfunction [Not Recovered/Not Resolved]
  - Ischaemic cardiomyopathy [Not Recovered/Not Resolved]
  - Cardiac failure [Recovering/Resolving]

NARRATIVE: CASE EVENT DATE: 20180524
